FAERS Safety Report 4509877-2 (Version None)
Quarter: 2004Q4

REPORT INFORMATION
  Report Type: 
  Country: None (occurrence: None)
  Receive Date: 20041124
  Receipt Date: 20041117
  Transmission Date: 20050328
  Serious: Yes (Hospitalization)
  Sender: FDA-Public Use
  Company Number: FR-BRISTOL-MYERS SQUIBB COMPANY-12768594

PATIENT
  Age: 27 Year
  Sex: Female

DRUGS (7)
  1. ATAZANAVIR [Suspect]
     Indication: HIV INFECTION
     Route: 048
     Dates: start: 20040916, end: 20040918
  2. VIREAD [Suspect]
     Indication: HIV INFECTION
     Route: 048
     Dates: start: 20040916, end: 20040918
  3. KALETRA [Suspect]
     Indication: HIV INFECTION
     Route: 048
     Dates: start: 20040916, end: 20040918
  4. LOXEN [Concomitant]
     Route: 042
     Dates: start: 20040915, end: 20040920
  5. CLAMOXYL [Concomitant]
     Route: 042
     Dates: start: 20040915
  6. CELESTENE [Concomitant]
     Route: 042
     Dates: start: 20040915, end: 20040916
  7. PERFALGAN [Concomitant]
     Route: 042
     Dates: start: 20040915, end: 20040915

REACTIONS (8)
  - ALANINE AMINOTRANSFERASE INCREASED [None]
  - ASPARTATE AMINOTRANSFERASE INCREASED [None]
  - CAESAREAN SECTION [None]
  - DRUG EXPOSURE DURING PREGNANCY [None]
  - MITOCHONDRIAL TOXICITY [None]
  - PREGNANCY [None]
  - TRANSAMINASES INCREASED [None]
  - VOMITING [None]
